FAERS Safety Report 12919878 (Version 2)
Quarter: 2017Q3

REPORT INFORMATION
  Report Type: Report from Study
  Country: US (occurrence: US)
  Receive Date: 20161108
  Receipt Date: 20170721
  Transmission Date: 20171127
  Serious: Yes (Hospitalization)
  Sender: FDA-Public Use
  Company Number: US-EISAI MEDICAL RESEARCH-EC-2016-021126

PATIENT
  Age: 86 Year
  Sex: Male
  Weight: 86 kg

DRUGS (25)
  1. METOPROLOL SUCCINATE. [Concomitant]
     Active Substance: METOPROLOL SUCCINATE
  2. ATOVAQUONE. [Concomitant]
     Active Substance: ATOVAQUONE
  3. FUROSEMIDE. [Concomitant]
     Active Substance: FUROSEMIDE
  4. LENVIMA [Interacting]
     Active Substance: LENVATINIB
     Route: 048
     Dates: start: 201610, end: 20161026
  5. AFINITOR [Interacting]
     Active Substance: EVEROLIMUS
     Indication: RENAL CELL CARCINOMA
     Dosage: UNKNOWN
     Route: 048
     Dates: end: 20161008
  6. HEPARIN [Concomitant]
     Active Substance: HEPARIN SODIUM
  7. PANTOPRAZOLE [Concomitant]
     Active Substance: PANTOPRAZOLE
  8. AFINITOR [Interacting]
     Active Substance: EVEROLIMUS
     Dosage: PATIENT TOOK 3 DAYS WORTH OF AFINITOR
     Route: 048
     Dates: start: 20161009, end: 20161009
  9. FINASTERIDE. [Concomitant]
     Active Substance: FINASTERIDE
  10. FLUCONAZOLE. [Concomitant]
     Active Substance: FLUCONAZOLE
  11. MICONAZOLE. [Concomitant]
     Active Substance: MICONAZOLE
  12. BACTRIM DS [Concomitant]
     Active Substance: SULFAMETHOXAZOLE\TRIMETHOPRIM
  13. VITAMIN B12 [Concomitant]
     Active Substance: CYANOCOBALAMIN
  14. CALCIUM + D3 [Concomitant]
     Active Substance: CALCIUM\CHOLECALCIFEROL
  15. LACTOBACILLUS [Concomitant]
     Active Substance: LACTOBACILLUS ACIDOPHILUS
  16. LEVOTHYROXINE. [Concomitant]
     Active Substance: LEVOTHYROXINE
  17. LENVIMA [Suspect]
     Active Substance: LENVATINIB
     Indication: RENAL CELL CARCINOMA
     Route: 048
     Dates: start: 20161005, end: 20161008
  18. CALTRATE [Concomitant]
     Active Substance: CALCIUM CARBONATE
  19. LENVIMA [Interacting]
     Active Substance: LENVATINIB
     Dosage: PATIENT TOOK 3 DAYS WORTH OF LENVIMA
     Route: 048
     Dates: start: 20161009, end: 20161009
  20. LENVIMA [Interacting]
     Active Substance: LENVATINIB
     Route: 048
     Dates: end: 20170615
  21. MULTIVITAMINS [Concomitant]
     Active Substance: VITAMINS
  22. IMODIUM A-D [Concomitant]
     Active Substance: LOPERAMIDE HYDROCHLORIDE
  23. LEVOFLOXACIN. [Concomitant]
     Active Substance: LEVOFLOXACIN
  24. PROSCAR [Concomitant]
     Active Substance: FINASTERIDE
  25. PROTONIX [Concomitant]
     Active Substance: PANTOPRAZOLE SODIUM

REACTIONS (9)
  - Oedema peripheral [Recovering/Resolving]
  - Melaena [Unknown]
  - Pain [Recovering/Resolving]
  - Accidental overdose [Unknown]
  - Anaemia [Not Recovered/Not Resolved]
  - Rash [Not Recovered/Not Resolved]
  - Post procedural swelling [Unknown]
  - Gastric infection [Unknown]
  - Extremity necrosis [Recovering/Resolving]

NARRATIVE: CASE EVENT DATE: 20161009
